FAERS Safety Report 25767441 (Version 1)
Quarter: 2025Q3

REPORT INFORMATION
  Report Type: Spontaneous
  Country: EU (occurrence: EU)
  Receive Date: 20250905
  Receipt Date: 20250905
  Transmission Date: 20251021
  Serious: Yes (Other)
  Sender: SANDOZ
  Company Number: EU-SANDOZ-SDZ2025PT064376

PATIENT

DRUGS (4)
  1. ADALIMUMAB [Suspect]
     Active Substance: ADALIMUMAB
     Indication: Rheumatic disorder
     Route: 058
  2. SARS-CoV-2 vaccine [Concomitant]
     Route: 065
  3. SARS-CoV-2 vaccine [Concomitant]
     Indication: COVID-19
     Route: 065
  4. SARS-CoV-2 vaccine [Concomitant]
     Route: 065

REACTIONS (1)
  - Immunosuppression [Unknown]
